FAERS Safety Report 9203179 (Version 1)
Quarter: 2013Q1

REPORT INFORMATION
  Report Type: Spontaneous
  Country: US (occurrence: None)
  Receive Date: 20120709
  Receipt Date: 20120709
  Transmission Date: 20140127
  Serious: Yes (Other)
  Sender: FDA-Public Use
  Company Number: PHHY2010US77391

PATIENT
  Age: 71 Year
  Sex: Female
  Weight: 77 kg

DRUGS (4)
  1. GLEEVEC [Suspect]
     Indication: CHRONIC MYELOID LEUKAEMIA
     Route: 048
     Dates: start: 20100217
  2. HYDROCHLORTHIAZIDE (HYDROCHLORTHIAZIDE) [Concomitant]
  3. CRESTOR (ROSUVASTATIN CALCIUM) [Concomitant]
  4. GINKO BILOBA (GINKO BALOBA) [Concomitant]

REACTIONS (14)
  - Urinary tract infection [None]
  - Gene mutation identification test positive [None]
  - Hypercholesterolaemia [None]
  - Hypertension [None]
  - Dermatitis acneiform [None]
  - Wheezing [None]
  - Rash [None]
  - Blood count abnormal [None]
  - Platelet count decreased [None]
  - Flank pain [None]
  - Nausea [None]
  - Vomiting [None]
  - Muscle spasms [None]
  - Diarrhoea [None]
